FAERS Safety Report 17782088 (Version 1)
Quarter: 2020Q2

REPORT INFORMATION
  Report Type: Spontaneous
  Country: GB (occurrence: GB)
  Receive Date: 20200514
  Receipt Date: 20200514
  Transmission Date: 20200714
  Serious: No
  Sender: FDA-Public Use
  Company Number: GB-ALKEM LABORATORIES LIMITED-GB-ALKEM-2020-00426

PATIENT
  Age: 84 Year
  Sex: Female
  Weight: 66 kg

DRUGS (30)
  1. PREGABALIN. [Suspect]
     Active Substance: PREGABALIN
     Indication: ILL-DEFINED DISORDER
     Dosage: UNK
     Route: 065
     Dates: start: 20200131
  2. ZOMORPH [Concomitant]
     Active Substance: MORPHINE SULFATE
     Indication: ILL-DEFINED DISORDER
     Dosage: TAKE ONE IN THE MORNING
     Route: 065
     Dates: start: 20191115
  3. MACROGOL [Concomitant]
     Active Substance: POLYETHYLENE GLYCOLS
     Indication: ILL-DEFINED DISORDER
     Dosage: 1-2 SACHET
     Route: 065
     Dates: start: 20200115
  4. FERROUS FUMARATE [Concomitant]
     Active Substance: FERROUS FUMARATE
     Indication: ILL-DEFINED DISORDER
     Dosage: 210 MG
     Route: 065
     Dates: start: 20200111
  5. RANITIDINE. [Concomitant]
     Active Substance: RANITIDINE
     Indication: ILL-DEFINED DISORDER
     Dosage: 150 MG
     Route: 065
     Dates: start: 20200111
  6. HONEY [Concomitant]
     Active Substance: HONEY
     Indication: ILL-DEFINED DISORDER
     Dosage: 1 APPLICATION(S) UNCHECKED UNITS
     Route: 065
     Dates: start: 20200112
  7. RELETRANS [Concomitant]
     Active Substance: BUPRENORPHINE
     Indication: ILL-DEFINED DISORDER
     Dosage: 1 PATCH
     Route: 065
     Dates: start: 20200201
  8. CLINITAS EYE DROPS [Concomitant]
     Indication: ILL-DEFINED DISORDER
     Dosage: 1-2 DROP
     Route: 065
     Dates: start: 20200111
  9. FLUCLOXACILLIN [Concomitant]
     Active Substance: FLUCLOXACILLIN
     Indication: ILL-DEFINED DISORDER
     Dosage: 500 MG
     Route: 065
     Dates: start: 20191120
  10. BUPRENORPHINE. [Concomitant]
     Active Substance: BUPRENORPHINE
     Indication: ILL-DEFINED DISORDER
     Dosage: 1 PATCH
     Route: 065
     Dates: start: 20200111
  11. ACETYLSALICYLIC ACID [Concomitant]
     Active Substance: ASPIRIN
     Indication: ILL-DEFINED DISORDER
     Dosage: 75 MG
     Route: 065
     Dates: start: 20190412
  12. FUROSEMIDE. [Concomitant]
     Active Substance: FUROSEMIDE
     Indication: ILL-DEFINED DISORDER
     Dosage: 20 MG
     Route: 065
     Dates: start: 20200128
  13. TINZAPARIN [Concomitant]
     Active Substance: TINZAPARIN
     Indication: ILL-DEFINED DISORDER
     Dosage: 4,500 UNIT
     Route: 065
     Dates: start: 20200111, end: 20200203
  14. CLOTRIMAZOLE. [Concomitant]
     Active Substance: CLOTRIMAZOLE
     Indication: ILL-DEFINED DISORDER
     Dosage: 1 APPLICATION
     Route: 065
     Dates: start: 20200131
  15. DOCUSATE SODIUM. [Concomitant]
     Active Substance: DOCUSATE SODIUM
     Indication: ILL-DEFINED DISORDER
     Dosage: 200 MG
     Route: 065
     Dates: start: 20200111, end: 20200115
  16. OMEPRAZOLE. [Concomitant]
     Active Substance: OMEPRAZOLE
     Indication: ILL-DEFINED DISORDER
     Dosage: TAKE ONE DAILY
     Route: 065
     Dates: start: 20180717
  17. METFORMIN [Concomitant]
     Active Substance: METFORMIN HYDROCHLORIDE
     Indication: ILL-DEFINED DISORDER
     Dosage: 500 MG
     Route: 065
     Dates: start: 20180717
  18. FORTISIP [Concomitant]
     Active Substance: CARBOHYDRATES\FATTY ACIDS\MINERALS\PROTEIN\VITAMINS
     Indication: ILL-DEFINED DISORDER
     Dosage: 125 ML
     Route: 065
     Dates: start: 20200111, end: 20200114
  19. CLOPIDOGREL [Concomitant]
     Active Substance: CLOPIDOGREL BISULFATE
     Indication: ILL-DEFINED DISORDER
     Dosage: 75 MG
     Route: 065
     Dates: start: 20200122
  20. LISINOPRIL. [Concomitant]
     Active Substance: LISINOPRIL
     Indication: ILL-DEFINED DISORDER
     Dosage: TAKE ONE TABLET ONCE A DAY
     Route: 065
     Dates: start: 20190412
  21. CASSIA [Concomitant]
     Indication: ILL-DEFINED DISORDER
     Dosage: 15 MG
     Route: 065
     Dates: start: 20200115
  22. PREDNISOLONE. [Concomitant]
     Active Substance: PREDNISOLONE
     Indication: ILL-DEFINED DISORDER
     Dosage: 5 MG
     Route: 065
     Dates: start: 20180717
  23. OXYNORM [Concomitant]
     Active Substance: OXYCODONE HYDROCHLORIDE
     Indication: ILL-DEFINED DISORDER
     Dosage: 2.5 MG
     Route: 065
     Dates: start: 20200129
  24. LACRI-LUBE [Concomitant]
     Indication: ILL-DEFINED DISORDER
     Dosage: APPLY BOTH EYES AS REQUIRED
     Route: 065
     Dates: start: 20180717
  25. SIMVASTATIN. [Concomitant]
     Active Substance: SIMVASTATIN
     Indication: ILL-DEFINED DISORDER
     Dosage: 40 MG
     Route: 065
     Dates: start: 20180717
  26. MYCOPHENOLATE MOFETIL. [Concomitant]
     Active Substance: MYCOPHENOLATE MOFETIL
     Indication: ILL-DEFINED DISORDER
     Dosage: 250 MG
     Route: 065
     Dates: start: 20200112
  27. PARACETAMOL [Concomitant]
     Active Substance: ACETAMINOPHEN
     Indication: ILL-DEFINED DISORDER
     Dosage: 1 G
     Route: 065
     Dates: start: 20180717
  28. CALCIUM CARBONATE. [Concomitant]
     Active Substance: CALCIUM CARBONATE
     Indication: ILL-DEFINED DISORDER
     Dosage: 1 TABLET
     Route: 065
     Dates: start: 20180717
  29. LEVOTHYROXINE. [Concomitant]
     Active Substance: LEVOTHYROXINE
     Indication: ILL-DEFINED DISORDER
     Dosage: 100 MICROGRAM
     Route: 065
     Dates: start: 20180717
  30. ORAMORPH [Concomitant]
     Active Substance: MORPHINE SULFATE
     Indication: ILL-DEFINED DISORDER
     Dosage: 1.25MLS-2.5MLS 4 HOURLY TO BE TAKEN FOUR TIMES ...
     Route: 065
     Dates: start: 20191022

REACTIONS (1)
  - Nightmare [Recovered/Resolved]

NARRATIVE: CASE EVENT DATE: 20200204
